FAERS Safety Report 6585022-7 (Version None)
Quarter: 2010Q1

REPORT INFORMATION
  Report Type: 
  Country: None (occurrence: None)
  Receive Date: 20100204
  Receipt Date: 20100128
  Transmission Date: 20100710
  Serious: Yes (Other)
  Sender: FDA-Public Use
  Company Number: 2010US000164

PATIENT
  Age: 39 Year
  Sex: Female

DRUGS (2)
  1. VIBATIV [Suspect]
     Indication: ACCIDENTAL EXPOSURE
     Dates: start: 20091211, end: 20091211
  2. VIBATIV [Suspect]
     Indication: ACCIDENTAL EXPOSURE
     Dates: start: 20091218, end: 20091218

REACTIONS (17)
  - ACCIDENTAL EXPOSURE [None]
  - APHONIA [None]
  - ARTHRALGIA [None]
  - BURNING SENSATION [None]
  - CHAPPED LIPS [None]
  - COUGH [None]
  - ERYTHEMA [None]
  - HYPERSENSITIVITY [None]
  - LIP BLISTER [None]
  - LIP DRY [None]
  - LIP SWELLING [None]
  - NECK PAIN [None]
  - NO THERAPEUTIC RESPONSE [None]
  - OROPHARYNGEAL PAIN [None]
  - RASH [None]
  - TEMPOROMANDIBULAR JOINT SYNDROME [None]
  - TONGUE BLISTERING [None]
